FAERS Safety Report 14155698 (Version 1)
Quarter: 2017Q4

REPORT INFORMATION
  Report Type: Report from Study
  Country: US (occurrence: US)
  Receive Date: 20171103
  Receipt Date: 20171103
  Transmission Date: 20180321
  Serious: Yes (Hospitalization)
  Sender: FDA-Public Use
  Company Number: US-TAIHO ONCOLOGY INC-EU-2017-01387

PATIENT
  Age: 70 Year
  Sex: Male
  Weight: 62.2 kg

DRUGS (8)
  1. POTASSIUM [Concomitant]
     Active Substance: POTASSIUM
     Dosage: NI
  2. ADVAIR HFA [Concomitant]
     Active Substance: FLUTICASONE PROPIONATE\SALMETEROL XINAFOATE
     Dosage: NI
  3. NEXIUM [Concomitant]
     Active Substance: ESOMEPRAZOLE MAGNESIUM
     Dosage: NI
  4. MUCINEX [Concomitant]
     Active Substance: GUAIFENESIN
  5. LONSURF [Suspect]
     Active Substance: TIPIRACIL HYDROCHLORIDE\TRIFLURIDINE
     Indication: RECTAL CANCER
     Route: 048
     Dates: end: 201710
  6. LOSARTAN. [Concomitant]
     Active Substance: LOSARTAN
     Dosage: NI
  7. ALBUTEROL. [Concomitant]
     Active Substance: ALBUTEROL
  8. AMLODIPINE [Concomitant]
     Active Substance: AMLODIPINE BESYLATE
     Dosage: NI

REACTIONS (2)
  - Hyperglycaemia [Unknown]
  - Renal disorder [Unknown]

NARRATIVE: CASE EVENT DATE: 20171016
